FAERS Safety Report 8977116 (Version 2)
Quarter: 2013Q1

REPORT INFORMATION
  Report Type: Spontaneous
  Country: US (occurrence: US)
  Receive Date: 20121220
  Receipt Date: 20130115
  Transmission Date: 20140127
  Serious: Yes (Other)
  Sender: FDA-Public Use
  Company Number: US-BIOGENIDEC-2012BI061142

PATIENT
  Age: 47 Year
  Sex: Female

DRUGS (3)
  1. TYSABRI [Suspect]
     Indication: MULTIPLE SCLEROSIS
     Route: 042
     Dates: start: 20120220
  2. LOSARTAN [Concomitant]
     Indication: HYPERTENSION
  3. IRON SUPPLEMENTS [Concomitant]
     Indication: BLOOD IRON DECREASED

REACTIONS (1)
  - Supraventricular tachycardia [Recovered/Resolved]
